FAERS Safety Report 21568275 (Version 1)
Quarter: 2022Q4

REPORT INFORMATION
  Report Type: Spontaneous
  Country: US (occurrence: None)
  Receive Date: 20221107
  Receipt Date: 20221107
  Transmission Date: 20230112
  Serious: Yes (Life-Threatening, Hospitalization)
  Sender: FDA-Public Use
  Company Number: None

PATIENT
  Age: 76 Year
  Sex: Male
  Weight: 80.74 kg

DRUGS (2)
  1. DAPTOMYCIN [Suspect]
     Active Substance: DAPTOMYCIN
     Indication: Arthritis bacterial
     Dosage: OTHER STRENGTH : 250MG/VIL;?FREQUENCY : DAILY;?
     Route: 042
     Dates: start: 20220716, end: 20220728
  2. DAPTOMYCIN [Suspect]
     Active Substance: DAPTOMYCIN
     Indication: Localised infection

REACTIONS (8)
  - Rhabdomyolysis [None]
  - Arthralgia [None]
  - Arthralgia [None]
  - Acute kidney injury [None]
  - Renal failure [None]
  - Platelet count decreased [None]
  - Renal tubular necrosis [None]
  - Haemodialysis [None]

NARRATIVE: CASE EVENT DATE: 20220728
